FAERS Safety Report 5383696-X (Version None)
Quarter: 2007Q2

REPORT INFORMATION
  Report Type: 
  Country: None (occurrence: None)
  Receive Date: 20070629
  Receipt Date: 20060503
  Transmission Date: 20071010
  Serious: Yes (Life-Threatening)
  Sender: FDA-Public Use
  Company Number: GXBR2006US02231

PATIENT
  Sex: Female

DRUGS (2)
  1. SULFAMETHOXAZOLE TRIMETHOPRIM [Suspect]
     Dosage: ORAL
     Route: 048
     Dates: start: 20040420, end: 20070503
  2. ROCEPHIN [Suspect]
     Dosage: TOTAL OF 2 GRAMS, INJECTION NOS

REACTIONS (5)
  - BLISTER [None]
  - MUCOSAL INFLAMMATION [None]
  - PAIN [None]
  - SKIN LESION [None]
  - TOXIC EPIDERMAL NECROLYSIS [None]
